FAERS Safety Report 7354336-5 (Version None)
Quarter: 2011Q1

REPORT INFORMATION
  Report Type: 
  Country: None (occurrence: None)
  Receive Date: 20110316
  Receipt Date: 20110301
  Transmission Date: 20110831
  Serious: Yes (Hospitalization)
  Sender: FDA-Public Use
  Company Number: GB-JNJFOC-20100606735

PATIENT
  Age: 76 Year
  Sex: Female

DRUGS (12)
  1. AMILORIDE HYDROCHLORIDE AND HYDROCHLOROTHIAZIDE [Concomitant]
  2. FOLIC ACID [Concomitant]
  3. NICOTINAMIDE [Concomitant]
  4. LOPERAMIDE [Concomitant]
  5. VITAMIN B [Concomitant]
  6. OXYBUTYNIN [Concomitant]
  7. IBUPROFEN [Suspect]
     Route: 048
  8. CIMETIDINE [Concomitant]
  9. IBUPROFEN [Suspect]
     Indication: PAIN
     Route: 048
  10. POTASSIUM [Suspect]
     Indication: HYPOKALAEMIA
     Route: 048
  11. PERINDOPRIL ERBUMINE [Concomitant]
  12. THEOPHYLLINE [Concomitant]

REACTIONS (8)
  - DIARRHOEA [None]
  - DYSPEPSIA [None]
  - ABDOMINAL PAIN [None]
  - UPPER GASTROINTESTINAL HAEMORRHAGE [None]
  - VOMITING [None]
  - HYPOTENSION [None]
  - MELAENA [None]
  - ATRIAL FIBRILLATION [None]
